FAERS Safety Report 9818043 (Version 1)
Quarter: 2014Q1

REPORT INFORMATION
  Report Type: Spontaneous
  Country: US (occurrence: None)
  Receive Date: 20140113
  Receipt Date: 20140113
  Transmission Date: 20141002
  Serious: No
  Sender: FDA-Public Use
  Company Number: None

PATIENT
  Age: 51 Year
  Sex: Female

DRUGS (1)
  1. H.P. ACTHAR [Suspect]
     Indication: MULTIPLE SCLEROSIS RELAPSE
     Dosage: 80 UNITS QD X5DS SC
     Route: 058
     Dates: start: 20131029

REACTIONS (1)
  - Drug ineffective [None]
